FAERS Safety Report 6203751-1 (Version None)
Quarter: 2009Q2

REPORT INFORMATION
  Report Type: 
  Country: None (occurrence: None)
  Receive Date: 20090521
  Receipt Date: 20090515
  Transmission Date: 20091009
  Serious: Yes (Death, Hospitalization)
  Sender: FDA-Public Use
  Company Number: 2009US000838

PATIENT
  Age: 53 Year
  Sex: Male

DRUGS (1)
  1. PROGRAF [Suspect]
     Indication: STEM CELL TRANSPLANT

REACTIONS (11)
  - ACUTE RESPIRATORY DISTRESS SYNDROME [None]
  - CEREBROVASCULAR ACCIDENT [None]
  - CYTOMEGALOVIRUS INFECTION [None]
  - ESCHERICHIA BACTERAEMIA [None]
  - GASTROENTERITIS CRYPTOSPORIDIAL [None]
  - GRAFT VERSUS HOST DISEASE [None]
  - LIVER DISORDER [None]
  - MULTI-ORGAN FAILURE [None]
  - PNEUMONIA ASPIRATION [None]
  - SEPTIC SHOCK [None]
  - STAPHYLOCOCCAL BACTERAEMIA [None]
